FAERS Safety Report 9228454 (Version 1)
Quarter: 2013Q2

REPORT INFORMATION
  Report Type: Report from Study
  Country: DE (occurrence: DE)
  Receive Date: 20130412
  Receipt Date: 20130412
  Transmission Date: 20140414
  Serious: Yes (Hospitalization)
  Sender: FDA-Public Use
  Company Number: DE-ROCHE-1212120

PATIENT
  Age: 79 Year
  Sex: Male
  Weight: 89 kg

DRUGS (2)
  1. HEPARIN [Suspect]
     Indication: PULMONARY EMBOLISM
     Dosage: 1000 IE/HR
     Route: 042
     Dates: start: 20090722, end: 20090724
  2. TENECTEPLASE [Suspect]
     Indication: PULMONARY EMBOLISM
     Route: 040
     Dates: start: 20090722, end: 20090722

REACTIONS (1)
  - Subcutaneous haematoma [Recovered/Resolved]
